FAERS Safety Report 7086629-3 (Version None)
Quarter: 2010Q4

REPORT INFORMATION
  Report Type: 
  Country: None (occurrence: None)
  Receive Date: 20101105
  Receipt Date: 20101028
  Transmission Date: 20110411
  Serious: Yes (Hospitalization)
  Sender: FDA-Public Use
  Company Number: CHPA2010US17041

PATIENT
  Age: 86 Year
  Sex: Female
  Weight: 55.329 kg

DRUGS (1)
  1. MAALOX ANTACID/ANTIGAS RS LIQ COOL MINT (NCH) [Suspect]
     Indication: GASTRITIS
     Dosage: 1 TSP ^IN A DAY^, PRN
     Route: 048
     Dates: start: 20101001, end: 20101001

REACTIONS (4)
  - FEELING ABNORMAL [None]
  - GASTRITIS [None]
  - NAUSEA [None]
  - OFF LABEL USE [None]
